FAERS Safety Report 6656484-1 (Version None)
Quarter: 2010Q1

REPORT INFORMATION
  Report Type: 
  Country: None (occurrence: None)
  Receive Date: 20100329
  Receipt Date: 20100317
  Transmission Date: 20100710
  Serious: Yes (Other)
  Sender: FDA-Public Use
  Company Number: DE-PFIZER INC-2008046253

PATIENT
  Age: 35 Year
  Sex: Male
  Weight: 78 kg

DRUGS (3)
  1. CABERGOLINE [Suspect]
     Indication: PARKINSON'S DISEASE
     Dosage: 4MG/DAY
     Route: 048
     Dates: start: 20060401, end: 20080101
  2. TREMARIT [Concomitant]
     Dosage: UNK
     Route: 048
  3. CIALIS [Concomitant]
     Dosage: 10 MG, UNK

REACTIONS (7)
  - AGGRESSION [None]
  - HYPERSEXUALITY [None]
  - LIBIDO INCREASED [None]
  - MASKED FACIES [None]
  - PATHOLOGICAL GAMBLING [None]
  - PSYCHOMOTOR SKILLS IMPAIRED [None]
  - TREMOR [None]
